FAERS Safety Report 24311542 (Version 1)
Quarter: 2024Q3

REPORT INFORMATION
  Report Type: Spontaneous
  Country: US (occurrence: US)
  Receive Date: 20240912
  Receipt Date: 20240912
  Transmission Date: 20241016
  Serious: Yes (Other)
  Sender: CHATTEM
  Company Number: US-OPELLA-2024OHG031102

PATIENT
  Sex: Female

DRUGS (1)
  1. XYZAL [Suspect]
     Active Substance: LEVOCETIRIZINE DIHYDROCHLORIDE
     Indication: Product used for unknown indication
     Route: 065

REACTIONS (6)
  - Loss of consciousness [Unknown]
  - Decreased appetite [Unknown]
  - Psychomotor hyperactivity [Unknown]
  - Disturbance in attention [Unknown]
  - Oropharyngeal pain [Unknown]
  - Vision blurred [Unknown]

NARRATIVE: CASE EVENT DATE: 20240823
